FAERS Safety Report 9632884 (Version 3)
Quarter: 2014Q1

REPORT INFORMATION
  Report Type: Spontaneous
  Country: US (occurrence: US)
  Receive Date: 20131018
  Receipt Date: 20140121
  Transmission Date: 20141002
  Serious: Yes (Death, Hospitalization, Disabling, Other)
  Sender: FDA-Public Use
  Company Number: US-009507513-1310USA006038

PATIENT
  Sex: Female

DRUGS (9)
  1. FOSAMAX [Suspect]
     Indication: OSTEOPOROSIS POSTMENOPAUSAL
     Dosage: 10 MG, UNK
     Route: 048
     Dates: start: 19980101, end: 20060622
  2. FOSAMAX [Suspect]
     Dosage: 70 MG, UNK
     Route: 048
     Dates: end: 20060622
  3. CYANOCOBALAMIN [Concomitant]
     Dosage: 1000 MICROGRAM, QM
     Dates: start: 2005, end: 2009
  4. VALIUM [Concomitant]
     Indication: ANXIETY
     Dosage: 5-10 MG TID-QID
     Dates: start: 1989, end: 2009
  5. NEXIUM [Concomitant]
     Indication: GASTROOESOPHAGEAL REFLUX DISEASE
     Dosage: UNK
     Dates: start: 1990, end: 2000
  6. BONIVA [Concomitant]
     Indication: OSTEOPOROSIS POSTMENOPAUSAL
     Dosage: 150 MG, UNK
     Route: 048
     Dates: start: 20030623, end: 20080921
  7. PLAVIX [Concomitant]
     Indication: CEREBROVASCULAR ACCIDENT PROPHYLAXIS
     Dosage: 75 MG, QD
     Dates: start: 2004, end: 2009
  8. PREDNISONE [Concomitant]
     Indication: CHRONIC OBSTRUCTIVE PULMONARY DISEASE
     Dosage: UNK
     Dates: start: 1990, end: 2003
  9. CALCIUM (UNSPECIFIED) [Concomitant]
     Indication: OSTEOPOROSIS POSTMENOPAUSAL

REACTIONS (28)
  - Femur fracture [Not Recovered/Not Resolved]
  - Intramedullary rod insertion [Unknown]
  - Haemorrhagic anaemia [Recovering/Resolving]
  - Low turnover osteopathy [Not Recovered/Not Resolved]
  - Lung neoplasm malignant [Unknown]
  - Coronary arterial stent insertion [Unknown]
  - Death [Fatal]
  - Pneumonia staphylococcal [Unknown]
  - Chronic obstructive pulmonary disease [Unknown]
  - Aortic stent insertion [Unknown]
  - Peptic ulcer [Unknown]
  - Dyslipidaemia [Unknown]
  - Peripheral vascular disorder [Unknown]
  - Pernicious anaemia [Unknown]
  - Single functional kidney [Unknown]
  - Arthritis [Unknown]
  - Vascular operation [Unknown]
  - Synovial cyst [Unknown]
  - Hysterectomy [Unknown]
  - Cataract [Unknown]
  - Bacteraemia [Unknown]
  - Cataract operation [Unknown]
  - Impaired healing [Unknown]
  - Biopsy breast normal [Unknown]
  - Asthenia [Unknown]
  - Arthralgia [Not Recovered/Not Resolved]
  - Nausea [Unknown]
  - Retching [Unknown]
